FAERS Safety Report 21921871 (Version 1)
Quarter: 2023Q1

REPORT INFORMATION
  Report Type: Spontaneous
  Country: CA (occurrence: CA)
  Receive Date: 20230127
  Receipt Date: 20230127
  Transmission Date: 20230418
  Serious: Yes (Hospitalization)
  Sender: FDA-Public Use
  Company Number: CA-ELI_LILLY_AND_COMPANY-CA202301007118

PATIENT
  Age: 59 Year
  Sex: Female

DRUGS (9)
  1. INSULIN HUMAN [Interacting]
     Active Substance: INSULIN HUMAN
     Indication: Product used for unknown indication
     Dosage: UNK UNK, UNKNOWN
     Route: 065
  2. ISOPHANE INSULIN [Interacting]
     Active Substance: INSULIN NOS
     Indication: Product used for unknown indication
     Dosage: UNK UNK, UNKNOWN
     Route: 065
  3. JARDIANCE [Interacting]
     Active Substance: EMPAGLIFLOZIN
     Indication: Product used for unknown indication
     Dosage: 10 MG, DAILY
     Route: 065
  4. JARDIANCE [Interacting]
     Active Substance: EMPAGLIFLOZIN
     Dosage: 25 MG, DAILY
     Route: 065
  5. SAXAGLIPTIN HYDROCHLORIDE [Interacting]
     Active Substance: SAXAGLIPTIN HYDROCHLORIDE
     Indication: Product used for unknown indication
     Dosage: 2.5 MG, DAILY
     Route: 048
  6. SAXAGLIPTIN HYDROCHLORIDE [Interacting]
     Active Substance: SAXAGLIPTIN HYDROCHLORIDE
     Dosage: 5 MG, DAILY
     Route: 048
  7. GLICLAZIDE [Concomitant]
     Active Substance: GLICLAZIDE
     Indication: Product used for unknown indication
     Dosage: 120 MG, DAILY
     Route: 065
  8. GLYBURIDE [Concomitant]
     Active Substance: GLYBURIDE
     Indication: Product used for unknown indication
     Dosage: 20 MG, DAILY
  9. METFORMIN [Concomitant]
     Active Substance: METFORMIN HYDROCHLORIDE
     Indication: Product used for unknown indication
     Dosage: 850 MG, EVERY 8 HRS

REACTIONS (4)
  - Syncope [Unknown]
  - Ketoacidosis [Unknown]
  - Arrhythmia [Unknown]
  - Drug interaction [Unknown]
